FAERS Safety Report 5785217-6 (Version None)
Quarter: 2008Q2

REPORT INFORMATION
  Report Type: 
  Country: None (occurrence: None)
  Receive Date: 20080605
  Receipt Date: 20080423
  Transmission Date: 20081010
  Serious: No
  Sender: FDA-Public Use
  Company Number: A0724284A

PATIENT
  Age: 49 Year
  Weight: 133 kg

DRUGS (4)
  1. ALLI [Suspect]
  2. UNKNOWN MEDICATION [Concomitant]
  3. MULTI-VITAMIN [Concomitant]
  4. FISH OIL [Concomitant]

REACTIONS (1)
  - GASTROINTESTINAL DISORDER [None]
